FAERS Safety Report 6837073-2 (Version None)
Quarter: 2010Q3

REPORT INFORMATION
  Report Type: 
  Country: None (occurrence: None)
  Receive Date: 20100713
  Receipt Date: 20070504
  Transmission Date: 20110219
  Serious: No
  Sender: FDA-Public Use
  Company Number: US-PFIZER INC-2007037583

PATIENT
  Sex: Female
  Weight: 58.97 kg

DRUGS (8)
  1. CHANTIX [Suspect]
     Indication: SMOKING CESSATION THERAPY
     Dates: start: 20070502
  2. LEXAPRO [Suspect]
     Indication: DEPRESSION
     Dates: start: 20070502
  3. LOTREL [Concomitant]
  4. TOPROL-XL [Concomitant]
  5. GEMFIBROZIL [Concomitant]
  6. ZOCOR [Concomitant]
  7. ASPIRINE [Concomitant]
  8. LUNESTA [Concomitant]

REACTIONS (1)
  - FATIGUE [None]
